FAERS Safety Report 21287600 (Version 1)
Quarter: 2022Q3

REPORT INFORMATION
  Report Type: Report from Study
  Country: HU (occurrence: HU)
  Receive Date: 20220902
  Receipt Date: 20220902
  Transmission Date: 20221027
  Serious: Yes (Death)
  Sender: FDA-Public Use
  Company Number: HU-ABBVIE-22K-076-4526559-00

PATIENT
  Sex: Male

DRUGS (2)
  1. SKYRIZI [Suspect]
     Active Substance: RISANKIZUMAB-RZAA
     Indication: Psoriasis
     Dosage: 150 MG PER MONTH
     Route: 058
     Dates: start: 20191028, end: 20191124
  2. SKYRIZI [Suspect]
     Active Substance: RISANKIZUMAB-RZAA
     Dosage: 150 MG PER 3 MONTH
     Route: 058
     Dates: start: 20191125

REACTIONS (2)
  - Myocardial ischaemia [Fatal]
  - COVID-19 [Fatal]

NARRATIVE: CASE EVENT DATE: 20220205
